FAERS Safety Report 24712283 (Version 1)
Quarter: 2024Q4

REPORT INFORMATION
  Report Type: Spontaneous
  Country: US (occurrence: US)
  Receive Date: 20241209
  Receipt Date: 20241209
  Transmission Date: 20250114
  Serious: Yes (Death)
  Sender: CATALYST PHARMA
  Company Number: US-CATALYST PHARMACEUTICALS-US-CATA-24-01417

PATIENT
  Age: 15 Year
  Sex: Male
  Weight: 77.098 kg

DRUGS (11)
  1. AGAMREE [Suspect]
     Active Substance: VAMOROLONE
     Indication: Duchenne muscular dystrophy
     Dosage: 6 ML DAILY
     Route: 048
     Dates: start: 20240515
  2. VITAMIN D3 [Concomitant]
     Active Substance: CHOLECALCIFEROL
     Indication: Bone disorder
     Dosage: 2000 IU DAILY
     Route: 065
  3. CALCIUM CARBONATE [Concomitant]
     Active Substance: CALCIUM CARBONATE
     Indication: Bone disorder
     Dosage: 1500 (600 CA) DAILY
     Route: 065
  4. AMONDYS 45 [Concomitant]
     Active Substance: CASIMERSEN
     Indication: Duchenne muscular dystrophy
     Dosage: 40 MILLILITER, WEEKLY
     Route: 042
  5. LISINOPRIL [Concomitant]
     Active Substance: LISINOPRIL
     Indication: Cardiovascular disorder
     Dosage: 10 MG DAILY
     Route: 065
  6. FISH OIL [Concomitant]
     Active Substance: FISH OIL
     Indication: Cardiovascular disorder
     Dosage: 1250 MG DAILY
     Route: 065
  7. COENZYME Q10 [Concomitant]
     Active Substance: DIETARY SUPPLEMENT\UBIDECARENONE
     Indication: Cardiovascular disorder
     Dosage: 200 MG DAILY
     Route: 065
  8. VITAMIN C [Concomitant]
     Active Substance: ASCORBIC ACID
     Indication: Immune enhancement therapy
     Dosage: 900 MG DAILY
     Route: 048
  9. MAGNESIUM OXIDE [Concomitant]
     Active Substance: MAGNESIUM OXIDE
     Indication: Muscle spasms
     Dosage: 400 MG DAILY
     Route: 065
  10. OMEPRAZOLE [Concomitant]
     Active Substance: OMEPRAZOLE
     Indication: Gastrointestinal disorder prophylaxis
     Dosage: 20 MG DAILY
     Route: 065
  11. VITAMINS [Concomitant]
     Active Substance: VITAMINS
     Indication: Hypovitaminosis
     Dosage: 1 TABLET DAILY
     Route: 065

REACTIONS (1)
  - Death [Fatal]

NARRATIVE: CASE EVENT DATE: 20241124
